FAERS Safety Report 25123631 (Version 1)
Quarter: 2025Q1

REPORT INFORMATION
  Report Type: Spontaneous
  Country: US (occurrence: None)
  Receive Date: 20250325
  Receipt Date: 20250325
  Transmission Date: 20250409
  Serious: Yes (Life-Threatening)
  Sender: FDA-CTU
  Company Number: None

PATIENT
  Age: 74 Year
  Sex: Female
  Weight: 67.59 kg

DRUGS (1)
  1. REFRESH P.M. [Suspect]
     Active Substance: MINERAL OIL\PETROLATUM
     Indication: Dry eye
     Dosage: AT BEDTIME INTO THE EYE ?
     Route: 050
     Dates: start: 20250213, end: 20250306

REACTIONS (6)
  - Oropharyngeal pain [None]
  - Lymphadenopathy [None]
  - Swollen tongue [None]
  - Pharyngeal swelling [None]
  - Dysphagia [None]
  - Dyspnoea [None]

NARRATIVE: CASE EVENT DATE: 20250307
